FAERS Safety Report 4941337-7 (Version None)
Quarter: 2006Q1

REPORT INFORMATION
  Report Type: 
  Country: None (occurrence: None)
  Receive Date: 20060308
  Receipt Date: 20060221
  Transmission Date: 20060701
  Serious: Yes (Hospitalization)
  Sender: FDA-Public Use
  Company Number: DE-2006-002494

PATIENT
  Age: 69 Year
  Sex: Male
  Weight: 69 kg

DRUGS (1)
  1. FLUDARA [Suspect]
     Indication: CHRONIC LYMPHOCYTIC LEUKAEMIA
     Dosage: 30 MG, UNK; INTRAVENOUS
     Route: 042
     Dates: start: 20060102, end: 20060106

REACTIONS (2)
  - LYMPHOCYTE COUNT DECREASED [None]
  - THROMBOCYTOPENIA [None]
